FAERS Safety Report 4830322-1 (Version None)
Quarter: 2005Q4

REPORT INFORMATION
  Report Type: 
  Country: None (occurrence: None)
  Receive Date: 20051115
  Receipt Date: 20051102
  Transmission Date: 20060501
  Serious: Yes (Other)
  Sender: FDA-Public Use
  Company Number: 2005153408

PATIENT
  Age: 62 Year
  Sex: Male

DRUGS (2)
  1. IRINOTECAN HCL [Suspect]
     Indication: RECTAL CANCER METASTATIC
     Dosage: 60-100 MG (EVERY TWO WEEKS), INTRAVENOUS
     Route: 042
     Dates: start: 20031001
  2. TEGAFUR/GIMERACIL/OTERACIL POTASSIUM) [Concomitant]

REACTIONS (6)
  - CONDITION AGGRAVATED [None]
  - INTERSTITIAL LUNG DISEASE [None]
  - MALIGNANT NEOPLASM PROGRESSION [None]
  - METASTASES TO LUNG [None]
  - RECTAL CANCER [None]
  - TUMOUR MARKER INCREASED [None]
